FAERS Safety Report 18463893 (Version 3)
Quarter: 2020Q4

REPORT INFORMATION
  Report Type: Spontaneous
  Country: JP (occurrence: JP)
  Receive Date: 20201104
  Receipt Date: 20201214
  Transmission Date: 20210114
  Serious: Yes (Death)
  Sender: FDA-Public Use
  Company Number: JP-JNJFOC-20201103580

PATIENT
  Age: 92 Year
  Sex: Female
  Weight: 35 kg

DRUGS (9)
  1. XARELTO [Suspect]
     Active Substance: RIVAROXABAN
     Indication: ATRIAL FIBRILLATION
     Dosage: 10 MG, QD
     Route: 048
     Dates: end: 20200401
  2. TOLVAPTAN [Concomitant]
     Active Substance: TOLVAPTAN
     Dosage: DAILY DOSE 7.5 MG
     Dates: end: 20200401
  3. FAMOTIDINE. [Concomitant]
     Active Substance: FAMOTIDINE
     Dosage: DAILY DOSE 20 MG
     Dates: end: 20200401
  4. FUROSEMIDE. [Concomitant]
     Active Substance: FUROSEMIDE
     Dosage: DAILY DOSE 40 MG
     Dates: end: 20200401
  5. ENALAPRIL [Concomitant]
     Active Substance: ENALAPRIL
     Dosage: DAILY DOSE 5 MG
     Dates: end: 20200401
  6. TRAZENTA [Concomitant]
     Active Substance: LINAGLIPTIN
     Dosage: DAILY DOSE 5 MG
     Dates: end: 20200401
  7. VESICARE [Concomitant]
     Active Substance: SOLIFENACIN SUCCINATE
     Dosage: DAILY DOSE 5 MG
     Dates: end: 20200401
  8. SPIRONOLACTONE. [Concomitant]
     Active Substance: SPIRONOLACTONE
     Dosage: DAILY DOSE 25 MG
     Dates: end: 20200401
  9. FERROMIA [Concomitant]
     Active Substance: SODIUM FERROUS CITRATE
     Dosage: DAILY DOSE 50 MG
     Dates: end: 20200401

REACTIONS (1)
  - Cerebral infarction [Fatal]

NARRATIVE: CASE EVENT DATE: 20200330
